FAERS Safety Report 20053228 (Version 1)
Quarter: 2021Q4

REPORT INFORMATION
  Report Type: Spontaneous
  Country: US (occurrence: None)
  Receive Date: 20211109
  Receipt Date: 20211109
  Transmission Date: 20220303
  Serious: Yes (Other)
  Sender: FDA-Public Use
  Company Number: None

PATIENT
  Age: 45 Year
  Sex: Female
  Weight: 78 kg

DRUGS (1)
  1. HYDROXYCHLOROQUINE [Suspect]
     Active Substance: HYDROXYCHLOROQUINE
     Indication: Systemic lupus erythematosus
     Dosage: FREQUENCY : TWICE A DAY;?
     Route: 048
     Dates: start: 2013

REACTIONS (5)
  - Erythema [None]
  - Antinuclear antibody positive [None]
  - DNA antibody positive [None]
  - Rash pruritic [None]
  - Generalised oedema [None]

NARRATIVE: CASE EVENT DATE: 20190404
